FAERS Safety Report 19809364 (Version 2)
Quarter: 2022Q2

REPORT INFORMATION
  Report Type: Spontaneous
  Country: US (occurrence: US)
  Receive Date: 20210909
  Receipt Date: 20220404
  Transmission Date: 20220721
  Serious: No
  Sender: FDA-Public Use
  Company Number: US-PFIZER INC-2021709360

PATIENT
  Age: 50 Year
  Sex: Female

DRUGS (2)
  1. IBRANCE [Suspect]
     Active Substance: PALBOCICLIB
     Indication: Breast cancer female
     Dosage: 125 MG, CYCLIC (QD (EVERY DAY) FOR 21 DAYS ON 7 OFF)
     Route: 048
     Dates: start: 20210423, end: 20210604
  2. IBRANCE [Suspect]
     Active Substance: PALBOCICLIB
     Dosage: 125MG BY MOUTH EVERY DAY FOR 21 DAYS
     Route: 048
     Dates: start: 20210423

REACTIONS (6)
  - Stomatitis [Recovered/Resolved]
  - Mouth ulceration [Recovered/Resolved]
  - Blister [Not Recovered/Not Resolved]
  - Rash [Not Recovered/Not Resolved]
  - Stomatitis [Not Recovered/Not Resolved]
  - Glossodynia [Unknown]

NARRATIVE: CASE EVENT DATE: 20210605
